FAERS Safety Report 5694972-5 (Version None)
Quarter: 2008Q2

REPORT INFORMATION
  Report Type: 
  Country: None (occurrence: None)
  Receive Date: 20080404
  Receipt Date: 20080326
  Transmission Date: 20081010
  Serious: Yes (Other)
  Sender: FDA-Public Use
  Company Number: US-JNJFOC-20080306773

PATIENT
  Sex: Male
  Weight: 93.44 kg

DRUGS (3)
  1. DURAGESIC-100 [Suspect]
     Route: 062
  2. DURAGESIC-100 [Suspect]
     Indication: PAIN
     Route: 062
  3. XANAX [Concomitant]
     Indication: ANXIETY
     Route: 048

REACTIONS (12)
  - AMNESIA [None]
  - ANXIETY [None]
  - CHILLS [None]
  - CHROMATURIA [None]
  - CLAUSTROPHOBIA [None]
  - CONSTIPATION [None]
  - DRUG DOSE OMISSION [None]
  - DRUG INEFFECTIVE [None]
  - DYSPNOEA [None]
  - DYSURIA [None]
  - PAIN [None]
  - VERTIGO [None]
